FAERS Safety Report 18816367 (Version 1)
Quarter: 2021Q1

REPORT INFORMATION
  Report Type: Spontaneous
  Country: CA (occurrence: CA)
  Receive Date: 20210201
  Receipt Date: 20210201
  Transmission Date: 20210419
  Serious: Yes (Other)
  Sender: FDA-Public Use
  Company Number: CA-GLAXOSMITHKLINE-CACH2021001661

PATIENT
  Sex: Male

DRUGS (2)
  1. VOLTAREN EMULGEL JOINT PAIN EXTRA STRENGTH (2.32%) [Suspect]
     Active Substance: DICLOFENAC DIETHYLAMINE
     Indication: ARTHRALGIA
  2. VOLTAREN (DICLOFENAC DIETHYLAMMONIUM SALT) [Suspect]
     Active Substance: DICLOFENAC DIETHYLAMINE
     Indication: BACK PAIN
     Dosage: UNK
     Dates: start: 2016

REACTIONS (2)
  - Cerebrovascular accident [Unknown]
  - Drug ineffective [Unknown]

NARRATIVE: CASE EVENT DATE: 2016
